FAERS Safety Report 10005094 (Version 1)
Quarter: 2014Q1

REPORT INFORMATION
  Report Type: Spontaneous
  Country: NL (occurrence: NL)
  Receive Date: 20140312
  Receipt Date: 20140312
  Transmission Date: 20141002
  Serious: Yes (Death)
  Sender: FDA-Public Use
  Company Number: NL-B.I. PHARMACEUTICALS,INC./RIDGEFIELD-2014-BI-10561NL

PATIENT
  Sex: Male

DRUGS (7)
  1. PRADAXA [Suspect]
     Indication: ATRIAL FIBRILLATION
     Dosage: 220 MG
     Route: 065
     Dates: start: 20120104
  2. SPIRIVA [Suspect]
     Indication: PRODUCT USED FOR UNKNOWN INDICATION
     Route: 065
  3. ALENDRONINEZUUR [Concomitant]
     Route: 065
  4. PANTOPRAZOL [Concomitant]
     Route: 065
  5. TRAMADOL [Concomitant]
     Route: 065
  6. RASILEZ [Concomitant]
     Route: 065
  7. LOSARTAN [Concomitant]
     Route: 065

REACTIONS (1)
  - Death [Fatal]
